FAERS Safety Report 6486728-0 (Version None)
Quarter: 2009Q4

REPORT INFORMATION
  Report Type: 
  Country: None (occurrence: None)
  Receive Date: 20091210
  Receipt Date: 20091208
  Transmission Date: 20100525
  Serious: Yes (Death, Hospitalization, Other)
  Sender: FDA-Public Use
  Company Number: DE-BAYER-200941974GPV

PATIENT
  Age: 17 Year
  Sex: Female

DRUGS (1)
  1. YASMIN [Suspect]
     Indication: CONTRACEPTION
     Route: 048
     Dates: end: 20091105

REACTIONS (12)
  - BRAIN DEATH [None]
  - CARDIAC ARREST [None]
  - CIRCULATORY COLLAPSE [None]
  - COMA [None]
  - DYSPNOEA [None]
  - HAEMOPTYSIS [None]
  - HYPOXIC ENCEPHALOPATHY [None]
  - INFECTION [None]
  - LOSS OF CONSCIOUSNESS [None]
  - NAUSEA [None]
  - PULMONARY EMBOLISM [None]
  - STATUS EPILEPTICUS [None]
